FAERS Safety Report 8784096 (Version 1)
Quarter: 2012Q4

REPORT INFORMATION
  Report Type: Spontaneous
  Country: US (occurrence: None)
  Receive Date: 20120829
  Receipt Date: 20120829
  Transmission Date: 20130627
  Serious: Yes (Other)
  Sender: FDA-Public Use
  Company Number: PERC20120130

PATIENT
  Age: 26 Year
  Sex: Female

DRUGS (1)
  1. PERCOCET [Suspect]
     Indication: DRUG ABUSE
     Dosage: insufflation

REACTIONS (7)
  - Headache [None]
  - Intentional drug misuse [None]
  - Nasal necrosis [None]
  - Stomatitis necrotising [None]
  - Drug abuse [None]
  - Pharyngeal necrosis [None]
  - Drug dependence [None]
